FAERS Safety Report 9246041 (Version 4)
Quarter: 2014Q2

REPORT INFORMATION
  Report Type: Report from Study
  Country: US (occurrence: US)
  Receive Date: 20130422
  Receipt Date: 20140512
  Transmission Date: 20141212
  Serious: Yes (Hospitalization, Other)
  Sender: FDA-Public Use
  Company Number: PHEH2013US008676

PATIENT
  Age: 22 Year
  Sex: Male

DRUGS (7)
  1. AFINITOR [Suspect]
     Indication: ANGIOMYOLIPOMA
     Dosage: 40 MG, ONCE A WEEK
     Route: 048
     Dates: start: 20110501, end: 201302
  2. AFINITOR [Suspect]
     Dosage: 40 MG, WEEKLY
     Dates: end: 20130718
  3. AFINITOR [Suspect]
     Route: 048
     Dates: start: 20131004, end: 20140204
  4. LAMICTAL [Concomitant]
  5. LISINOPRIL [Concomitant]
  6. FELBATOL [Concomitant]
  7. RISPERDAL [Concomitant]

REACTIONS (8)
  - Viral infection [Recovering/Resolving]
  - Diarrhoea [Recovering/Resolving]
  - Vomiting [Recovering/Resolving]
  - Nasal neoplasm [Recovered/Resolved]
  - Tympanic membrane perforation [Recovering/Resolving]
  - Tooth abscess [Recovered/Resolved]
  - Ear disorder [Recovering/Resolving]
  - Ear infection [Unknown]
